FAERS Safety Report 10705170 (Version 8)
Quarter: 2015Q2

REPORT INFORMATION
  Report Type: Spontaneous
  Country: US (occurrence: US)
  Receive Date: 20150112
  Receipt Date: 20150526
  Transmission Date: 20150821
  Serious: Yes (Hospitalization, Other)
  Sender: FDA-Public Use
  Company Number: US-PFIZER INC-2015010578

PATIENT
  Age: 58 Year
  Sex: Female
  Weight: 68 kg

DRUGS (10)
  1. LYRICA [Suspect]
     Active Substance: PREGABALIN
     Indication: COMPLEX REGIONAL PAIN SYNDROME
     Dosage: 150 MG, 3X/DAY
     Route: 048
     Dates: start: 2007
  2. COUMADIN [Concomitant]
     Active Substance: WARFARIN SODIUM
     Indication: THROMBOSIS PROPHYLAXIS
     Dosage: 5MG (UNKNOWN FREQUENCY) 5 DAYS A WEEK
     Dates: start: 2001
  3. FISH OIL [Concomitant]
     Active Substance: FISH OIL
     Indication: BLOOD TRIGLYCERIDES ABNORMAL
     Dosage: 1200 IU, UNK
     Dates: start: 2012
  4. LYRICA [Suspect]
     Active Substance: PREGABALIN
     Indication: NEUROPATHY PERIPHERAL
     Dosage: UNK
  5. KAON-CL [Concomitant]
     Indication: ELECTROLYTE SUBSTITUTION THERAPY
     Dosage: 8 MEQ, 2X/DAY
     Dates: start: 2002
  6. MORPHINE [Concomitant]
     Active Substance: MORPHINE
     Indication: BREAKTHROUGH PAIN
     Dosage: 15 MG, AS NEEDED UP TO 5 TIMES A DAY
     Route: 048
     Dates: start: 201410
  7. COUMADIN [Concomitant]
     Active Substance: WARFARIN SODIUM
     Dosage: 6MG (UNKNOWN FREQUENCY) 2 DAYS A WEEK
     Dates: start: 2001
  8. VITAMIN D [Concomitant]
     Active Substance: CHOLECALCIFEROL
     Dosage: 5000 IU, UNK
     Dates: start: 2012
  9. FUROSEMIDE. [Concomitant]
     Active Substance: FUROSEMIDE
     Indication: SWELLING
     Dosage: 40 MG, 2X/DAY
     Dates: start: 2001
  10. SIMVASTATIN. [Concomitant]
     Active Substance: SIMVASTATIN
     Indication: BLOOD CHOLESTEROL INCREASED
     Dosage: 20 MG, DAILY
     Dates: start: 2002

REACTIONS (8)
  - Erythema [Recovered/Resolved]
  - Cellulitis [Recovered/Resolved]
  - Product use issue [Unknown]
  - Swelling [Recovered/Resolved]
  - Pain [Recovered/Resolved]
  - Skin exfoliation [Recovered/Resolved]
  - Disease progression [Recovered/Resolved]
  - Diabetes mellitus [Not Recovered/Not Resolved]

NARRATIVE: CASE EVENT DATE: 2007
